FAERS Safety Report 12032153 (Version 1)
Quarter: 2016Q1

REPORT INFORMATION
  Report Type: Report from Study
  Country: US (occurrence: US)
  Receive Date: 20160207
  Receipt Date: 20160207
  Transmission Date: 20160526
  Serious: No
  Sender: FDA-Public Use
  Company Number: US-ABBVIE-15K-163-1509129-00

PATIENT
  Age: 43 Year
  Sex: Female

DRUGS (1)
  1. HUMIRA [Suspect]
     Active Substance: ADALIMUMAB
     Indication: RHEUMATOID ARTHRITIS
     Route: 058
     Dates: start: 20140301

REACTIONS (6)
  - Skin warm [Unknown]
  - Skin discolouration [Not Recovered/Not Resolved]
  - Wound [Unknown]
  - Skin exfoliation [Unknown]
  - Wound complication [Recovered/Resolved]
  - Injection site irritation [Recovering/Resolving]

NARRATIVE: CASE EVENT DATE: 201511
